FAERS Safety Report 22281363 (Version 2)
Quarter: 2023Q2

REPORT INFORMATION
  Report Type: Spontaneous
  Country: DE (occurrence: DE)
  Receive Date: 20230504
  Receipt Date: 20230518
  Transmission Date: 20230722
  Serious: Yes (Other)
  Sender: FDA-Public Use
  Company Number: DE-TEVA-2023-DE-2883328

PATIENT
  Age: 37 Year
  Sex: Male

DRUGS (11)
  1. AZATHIOPRINE [Suspect]
     Active Substance: AZATHIOPRINE
     Indication: Chorioretinitis
     Dosage: 150 MILLIGRAM DAILY;
     Route: 048
     Dates: start: 2016
  2. AZATHIOPRINE [Suspect]
     Active Substance: AZATHIOPRINE
     Indication: Retinal occlusive vasculitis
  3. METHOTREXATE [Suspect]
     Active Substance: METHOTREXATE
     Indication: Chorioretinitis
     Route: 058
     Dates: start: 2016
  4. METHOTREXATE [Suspect]
     Active Substance: METHOTREXATE
     Indication: Retinal occlusive vasculitis
  5. ADALIMUMAB [Suspect]
     Active Substance: ADALIMUMAB
     Indication: Chorioretinitis
     Route: 058
     Dates: start: 2016
  6. ADALIMUMAB [Suspect]
     Active Substance: ADALIMUMAB
     Indication: Retinal occlusive vasculitis
  7. BEVACIZUMAB [Suspect]
     Active Substance: BEVACIZUMAB
     Indication: Chorioretinitis
     Dosage: 6 INJECTION ROUTE: {INTRAVITREAL}
     Route: 050
     Dates: start: 2016
  8. BEVACIZUMAB [Suspect]
     Active Substance: BEVACIZUMAB
     Indication: Retinal occlusive vasculitis
  9. OZURDEX [Suspect]
     Active Substance: DEXAMETHASONE
     Indication: Chorioretinitis
     Dosage: OD ROUTE: {INTRAVITREAL}
     Route: 050
     Dates: start: 2016
  10. OZURDEX [Suspect]
     Active Substance: DEXAMETHASONE
     Indication: Retinal occlusive vasculitis
  11. ISONIAZID [Concomitant]
     Active Substance: ISONIAZID
     Indication: Antibiotic prophylaxis
     Dosage: 300 MILLIGRAM DAILY;
     Route: 065
     Dates: start: 2016

REACTIONS (2)
  - Hepatic enzyme increased [Unknown]
  - Drug ineffective [Unknown]

NARRATIVE: CASE EVENT DATE: 20160101
